FAERS Safety Report 4299342-2 (Version None)
Quarter: 2004Q1

REPORT INFORMATION
  Report Type: 
  Country: None (occurrence: None)
  Receive Date: 20040217
  Receipt Date: 20040204
  Transmission Date: 20041129
  Serious: Yes (Other)
  Sender: FDA-Public Use
  Company Number: US-JNJFOC-20031202964

PATIENT
  Age: 71 Year
  Sex: Female
  Weight: 52.6173 kg

DRUGS (7)
  1. REMICADE [Suspect]
     Indication: RHEUMATOID ARTHRITIS
     Dosage: 4 MG/KG, 1 IN 8 WEEK, INTRAVENOUS; 3 MG/KG, 1 IN 8 WEEK, INTRAVENOUS
     Route: 042
     Dates: start: 20010109, end: 20010220
  2. REMICADE [Suspect]
     Indication: RHEUMATOID ARTHRITIS
     Dosage: 4 MG/KG, 1 IN 8 WEEK, INTRAVENOUS; 3 MG/KG, 1 IN 8 WEEK, INTRAVENOUS
     Route: 042
     Dates: start: 20010109, end: 20030728
  3. REMICADE [Suspect]
     Indication: RHEUMATOID ARTHRITIS
     Dosage: 4 MG/KG, 1 IN 8 WEEK, INTRAVENOUS; 3 MG/KG, 1 IN 8 WEEK, INTRAVENOUS
     Route: 042
     Dates: start: 20040114
  4. METHOTREXATE [Concomitant]
  5. FOSAMAX [Concomitant]
  6. CALCIUM (CALCIUM) [Concomitant]
  7. VIOXX [Concomitant]

REACTIONS (6)
  - BRONCHIECTASIS [None]
  - COUGH [None]
  - HISTOPLASMOSIS [None]
  - LUNG INFILTRATION [None]
  - LUNG NEOPLASM [None]
  - SEROLOGY POSITIVE [None]
